FAERS Safety Report 8761828 (Version 2)
Quarter: 2012Q4

REPORT INFORMATION
  Report Type: Spontaneous
  Country: US (occurrence: None)
  Receive Date: 20120821
  Receipt Date: 20120905
  Transmission Date: 20130627
  Serious: Yes (Disabling)
  Sender: FDA-Public Use
  Company Number: USA/USA/12/0025451

PATIENT
  Age: 57 Year
  Sex: Female

DRUGS (6)
  1. LEVOFLOXACIN [Suspect]
     Indication: ABDOMINAL ABSCESS
     Route: 048
     Dates: start: 20120719, end: 20120812
  2. METRONIDAZOLE (METRONIDAZOLE) [Concomitant]
  3. TRAMADOL (TRAMADOL) [Concomitant]
  4. VERAPAMIL (VERAPAMIL) [Concomitant]
  5. HYDROCHLOROTHIAZIDE (HYDROCHLOROTHIAZIDE) [Concomitant]
  6. FLAGYL [Concomitant]

REACTIONS (4)
  - Arthralgia [None]
  - Muscle tightness [None]
  - Dysstasia [None]
  - Myalgia [None]
